FAERS Safety Report 18668159 (Version 5)
Quarter: 2021Q1

REPORT INFORMATION
  Report Type: Spontaneous
  Country: JP (occurrence: JP)
  Receive Date: 20201228
  Receipt Date: 20210325
  Transmission Date: 20210419
  Serious: Yes (Other)
  Sender: FDA-Public Use
  Company Number: JP-JNJFOC-20201246839

PATIENT
  Age: 59 Year
  Sex: Female
  Weight: 63.8 kg

DRUGS (18)
  1. DARZALEX [Suspect]
     Active Substance: DARATUMUMAB
     Dosage: DRD THERAPY SEVENTH COURSE?, DAY1
     Route: 041
  2. DEXAMETHASONE. [Concomitant]
     Active Substance: DEXAMETHASONE
     Indication: PLASMA CELL MYELOMA
     Dosage: KRD THERAPY SECOND COURSE, DAY181522
     Route: 065
  3. CYCLOPHOSPHAMIDE HYDRATE [Concomitant]
     Active Substance: CYCLOPHOSPHAMIDE
     Indication: PLASMA CELL MYELOMA
     Dosage: CYBORD THERAPY 1 COURSE, DAY1,8,15,22
     Route: 048
  4. DEXAMETHASONE. [Concomitant]
     Active Substance: DEXAMETHASONE
     Indication: PLASMA CELL MYELOMA
     Dosage: KRD THERAPY FIRST COURSE, DAY181522
     Route: 065
  5. LENALIDOMIDE HYDRATE [Concomitant]
     Active Substance: LENALIDOMIDE
     Indication: PLASMA CELL MYELOMA
     Dosage: KRD THERAPY SECOND COURSE, DAY1?21
     Route: 048
  6. CARFILZOMIB [Concomitant]
     Active Substance: CARFILZOMIB
     Indication: PLASMA CELL MYELOMA
     Dosage: KRD THERAPY FIRST COURSE, DAY1,2
     Route: 065
  7. LENALIDOMIDE HYDRATE [Concomitant]
     Active Substance: LENALIDOMIDE
     Indication: PLASMA CELL MYELOMA
     Dosage: DRD THERAPY DAY1?14
     Route: 048
  8. DARZALEX [Suspect]
     Active Substance: DARATUMUMAB
     Dosage: DRD THERAPY THIRD ? SIXTH COURSE, DAY1,15
     Route: 041
  9. LENALIDOMIDE HYDRATE [Concomitant]
     Active Substance: LENALIDOMIDE
     Indication: PLASMA CELL MYELOMA
     Dosage: KRD THERAPY FIRST COURSE, DAY1?21
     Route: 048
  10. CARFILZOMIB [Concomitant]
     Active Substance: CARFILZOMIB
     Indication: PLASMA CELL MYELOMA
     Dosage: KRD THERAPY SECOND COURSE, DAY1,2,8,9,15,16
     Route: 065
  11. CISPLATIN. [Concomitant]
     Active Substance: CISPLATIN
     Indication: GINGIVAL CANCER
     Dosage: 5 COURSE
     Route: 065
  12. VELCADE [Suspect]
     Active Substance: BORTEZOMIB
     Indication: PLASMA CELL MYELOMA
     Dosage: CYBORD THERAPY 1 COURSE, DAY1,8,15,22
     Route: 058
  13. DEXAMETHASONE. [Concomitant]
     Active Substance: DEXAMETHASONE
     Indication: PLASMA CELL MYELOMA
     Dosage: DRD THERAPY DAY1,2,8,9,15,16,22,23
     Route: 065
  14. DARZALEX [Suspect]
     Active Substance: DARATUMUMAB
     Indication: PLASMA CELL MYELOMA
     Dosage: DRD THERAPY FIRST AND SECOND COURSE, DAY1,8,15,22
     Route: 041
  15. DEXAMETHASONE. [Concomitant]
     Active Substance: DEXAMETHASONE
     Indication: PLASMA CELL MYELOMA
     Dosage: HIGH?DOSE DEXAMETHASONE THERAPY
     Route: 065
  16. DEXAMETHASONE. [Concomitant]
     Active Substance: DEXAMETHASONE
     Indication: PLASMA CELL MYELOMA
     Dosage: CYBORD THERAPY 1 COURSE, DAY1,8,15,22
     Route: 065
  17. CARFILZOMIB [Concomitant]
     Active Substance: CARFILZOMIB
     Indication: PLASMA CELL MYELOMA
     Dosage: KRD THERAPY FIRST COURSE, DAY8,9,15,16
     Route: 065
  18. CISPLATIN. [Concomitant]
     Active Substance: CISPLATIN
     Indication: GINGIVAL CANCER
     Dosage: 1 COURSE
     Route: 065

REACTIONS (1)
  - Neuropathy peripheral [Recovered/Resolved]
